FAERS Safety Report 9458993 (Version 1)
Quarter: 2013Q3

REPORT INFORMATION
  Report Type: Spontaneous
  Country: JP (occurrence: JP)
  Receive Date: 20130814
  Receipt Date: 20130814
  Transmission Date: 20140515
  Serious: Yes (Other)
  Sender: FDA-Public Use
  Company Number: JP-PFIZER INC-2013230413

PATIENT
  Age: 8 Year
  Sex: Male

DRUGS (5)
  1. METHOTREXATE SODIUM [Suspect]
     Indication: PROPHYLAXIS AGAINST GRAFT VERSUS HOST DISEASE
     Dosage: UNK
     Route: 042
  2. FLUDARABINE PHOSPHATE [Suspect]
     Indication: APLASTIC ANAEMIA
     Dosage: 26 MG/M^2/D FOR 5 D, DAYS -6 TO -2
  3. MELPHALAN [Suspect]
     Indication: APLASTIC ANAEMIA
     Dosage: 71 MG/M^2/D FOR 2 D, DAYS -3 AND -2
  4. TACROLIMUS [Suspect]
     Indication: PROPHYLAXIS AGAINST GRAFT VERSUS HOST DISEASE
     Dosage: UNK
  5. ANTITHYMOCYTE IMMUNOGLOBULIN [Suspect]
     Indication: APLASTIC ANAEMIA
     Dosage: 2.31 MG/KG/D FOR 2 D, DAYS -6 AND -5

REACTIONS (3)
  - Drug ineffective [Unknown]
  - Graft versus host disease [Recovering/Resolving]
  - Thrombotic microangiopathy [Recovering/Resolving]
